FAERS Safety Report 7406322-4 (Version None)
Quarter: 2011Q2

REPORT INFORMATION
  Report Type: 
  Country: None (occurrence: None)
  Receive Date: 20110411
  Receipt Date: 20110331
  Transmission Date: 20111010
  Serious: Yes (Other)
  Sender: FDA-Public Use
  Company Number: JP-MERCK-1103USA02872

PATIENT
  Age: 60 Year
  Sex: Female
  Weight: 67 kg

DRUGS (6)
  1. LIVALO [Suspect]
     Dosage: DOSAGE IS UNCERTAIN DURING A DAY
     Route: 065
     Dates: start: 20110101
  2. ZETIA [Suspect]
     Route: 048
     Dates: start: 20110101
  3. ZETIA [Suspect]
     Indication: HYPERCHOLESTEROLAEMIA
     Route: 048
     Dates: start: 20090525, end: 20110119
  4. LIVALO [Suspect]
     Indication: HYPERCHOLESTEROLAEMIA
     Dosage: DOSAGE IS UNCERTAIN DURING A DAY
     Route: 048
     Dates: start: 20090227, end: 20110119
  5. ALOSENN [Suspect]
     Indication: CONSTIPATION
     Dosage: DOSAGE IS UNCERTAIN DURING A DAY
     Route: 048
     Dates: start: 20110117, end: 20110119
  6. ZETIA [Suspect]
     Route: 048
     Dates: start: 20110323

REACTIONS (1)
  - THROMBOCYTOPENIC PURPURA [None]
